FAERS Safety Report 9279997 (Version 1)
Quarter: 2013Q2

REPORT INFORMATION
  Report Type: Spontaneous
  Country: FR (occurrence: FR)
  Receive Date: 20130509
  Receipt Date: 20130509
  Transmission Date: 20140414
  Serious: Yes (Hospitalization)
  Sender: FDA-Public Use
  Company Number: FR-PFIZER INC-2007314797

PATIENT
  Age: 37 Year
  Sex: Female

DRUGS (7)
  1. IBUPROFEN [Suspect]
     Indication: ABDOMINAL PAIN
     Dosage: 3 TABLETS
     Route: 048
     Dates: start: 20061018, end: 20061025
  2. NOZINAN [Suspect]
     Dosage: 15 DROPS
     Route: 048
     Dates: start: 20050628, end: 20061025
  3. DUPHALAC [Suspect]
     Route: 048
     Dates: end: 20061025
  4. RISPERDAL [Suspect]
     Dosage: 6 MG
     Route: 048
     Dates: start: 20061025, end: 20061025
  5. DEPAKINE [Suspect]
     Indication: EPILEPSY
     Dosage: 2000 MG, UNK
     Route: 065
     Dates: start: 20040615, end: 20061025
  6. ALEPSAL [Suspect]
     Indication: EPILEPSY
     Route: 065
     Dates: end: 20061025
  7. DOLIPRANE [Concomitant]
     Dosage: UNK
     Route: 065

REACTIONS (3)
  - Pancreatitis acute [Recovered/Resolved]
  - Ascites [Recovered/Resolved]
  - Pleural effusion [Recovered/Resolved]
